FAERS Safety Report 19981497 (Version 2)
Quarter: 2021Q4

REPORT INFORMATION
  Report Type: Report from Study
  Country: US (occurrence: US)
  Receive Date: 20211021
  Receipt Date: 20211125
  Transmission Date: 20220303
  Serious: Yes (Hospitalization, Other)
  Sender: FDA-Public Use
  Company Number: US-BIOGEN-2021BI01060213

PATIENT
  Sex: Female

DRUGS (2)
  1. TYSABRI [Suspect]
     Active Substance: NATALIZUMAB
     Indication: Multiple sclerosis
     Route: 065
     Dates: start: 20090928, end: 20170816
  2. TYSABRI [Suspect]
     Active Substance: NATALIZUMAB
     Route: 065
     Dates: start: 20191216

REACTIONS (6)
  - Tooth abscess [Recovered/Resolved]
  - Hypothalamo-pituitary disorder [Recovered/Resolved]
  - Anaemia [Not Recovered/Not Resolved]
  - Fall [Recovered/Resolved]
  - Lung perforation [Recovered/Resolved]
  - Scar [Recovered/Resolved]
